FAERS Safety Report 7234210-5 (Version None)
Quarter: 2011Q1

REPORT INFORMATION
  Report Type: 
  Country: None (occurrence: None)
  Receive Date: 20110119
  Receipt Date: 20110118
  Transmission Date: 20110831
  Serious: Yes (Death, Other)
  Sender: FDA-Public Use
  Company Number: MY-PFIZER INC-2011011374

PATIENT
  Age: 61 Year
  Sex: Female

DRUGS (4)
  1. TYGACIL [Suspect]
     Dosage: 50 MG, 2X/DAY
     Route: 042
     Dates: start: 20100405, end: 20100413
  2. ENOXAPARIN SODIUM [Concomitant]
  3. TYGACIL [Suspect]
     Indication: ACINETOBACTER INFECTION
     Dosage: 100 MG, SINGLE
     Route: 042
     Dates: start: 20100404, end: 20100404
  4. FLUCONAZOLE [Concomitant]
     Route: 042

REACTIONS (4)
  - INFECTION [None]
  - WHITE BLOOD CELL COUNT DECREASED [None]
  - MULTI-ORGAN FAILURE [None]
  - PLATELET COUNT DECREASED [None]
